FAERS Safety Report 7160971-X (Version None)
Quarter: 2010Q4

REPORT INFORMATION
  Report Type: 
  Country: None (occurrence: None)
  Receive Date: 20101214
  Receipt Date: 20101207
  Transmission Date: 20110411
  Serious: Yes (Hospitalization)
  Sender: FDA-Public Use
  Company Number: US-BRISTOL-MYERS SQUIBB COMPANY-15382815

PATIENT
  Age: 67 Year
  Sex: Male
  Weight: 75 kg

DRUGS (9)
  1. CARBOPLATIN [Suspect]
     Indication: NON-SMALL CELL LUNG CANCER
     Dosage: LAST DOSE:21SEP10 NO OF DAYS:82DAYS 1 DF:6AUC
     Route: 042
     Dates: start: 20100702
  2. PACLITAXEL [Suspect]
     Indication: NON-SMALL CELL LUNG CANCER
     Dosage: LAST DOSE:21SEP10 NO OF DAYS:82
     Route: 042
     Dates: start: 20100702
  3. BEVACIZUMAB [Suspect]
     Indication: NON-SMALL CELL LUNG CANCER
     Route: 042
     Dates: start: 20100702, end: 20100702
  4. FOLIC ACID [Concomitant]
     Indication: PROPHYLAXIS
     Dates: start: 20100625
  5. OMEPRAZOLE [Concomitant]
     Indication: GASTROOESOPHAGEAL REFLUX DISEASE
  6. IMODIUM [Concomitant]
     Indication: DIARRHOEA
  7. FENTANYL [Concomitant]
     Indication: PAIN
     Dosage: ONGOING
     Dates: start: 20101012
  8. REGLAN [Concomitant]
     Indication: GASTROOESOPHAGEAL REFLUX DISEASE
     Dosage: ONGOING
     Dates: start: 20100722
  9. DICLOFENAC [Concomitant]
     Indication: PAIN
     Dosage: ONGOING
     Dates: start: 20100615

REACTIONS (2)
  - DIVERTICULITIS [None]
  - SMALL INTESTINAL OBSTRUCTION [None]
